FAERS Safety Report 12946256 (Version 1)
Quarter: 2016Q4

REPORT INFORMATION
  Report Type: Spontaneous
  Country: US (occurrence: US)
  Receive Date: 20161115
  Receipt Date: 20161115
  Transmission Date: 20170207
  Serious: No
  Sender: FDA-Public Use
  Company Number: US-TAIHO ONCOLOGY INC-EU-2016-00984

PATIENT
  Age: 87 Year
  Sex: Female
  Weight: 51.98 kg

DRUGS (10)
  1. ACETYLSALICYLIC ACID [Concomitant]
     Active Substance: ASPIRIN
     Dosage: NI
  2. FISH OIL [Concomitant]
     Active Substance: FISH OIL
     Dosage: NI
  3. PROAIR HFA [Concomitant]
     Active Substance: ALBUTEROL SULFATE
     Dosage: NI
  4. LONSURF [Suspect]
     Active Substance: TIPIRACIL HYDROCHLORIDE\TRIFLURIDINE
     Indication: COLON CANCER
     Dosage: CYCLE 3
     Route: 048
     Dates: start: 20160321, end: 20160502
  5. FERROUS SULFATE. [Concomitant]
     Active Substance: FERROUS SULFATE
     Dosage: NI
  6. LISINOPRIL. [Concomitant]
     Active Substance: LISINOPRIL
     Dosage: NI
  7. AMLODIPINE BESILATE [Concomitant]
     Active Substance: AMLODIPINE BESYLATE
     Dosage: NI
  8. MAGIC MOUTHWASH [Concomitant]
     Active Substance: DIPHENHYDRAMINE HYDROCHLORIDE\LIDOCAINE HYDROCHLORIDE\NYSTATIN
     Dosage: NI
  9. CALCIUM CARBONATE/VITAMIN D NOS [Concomitant]
     Dosage: NI
  10. VITAMIN D3 [Concomitant]
     Active Substance: CHOLECALCIFEROL
     Dosage: NI

REACTIONS (5)
  - Malaise [Unknown]
  - Neutropenia [Unknown]
  - Dyspnoea [Unknown]
  - Anaemia [Unknown]
  - Disease progression [Unknown]

NARRATIVE: CASE EVENT DATE: 20160111
